FAERS Safety Report 10069099 (Version 1)
Quarter: 2014Q2

REPORT INFORMATION
  Report Type: Spontaneous
  Country: BR (occurrence: BR)
  Receive Date: 20140409
  Receipt Date: 20140409
  Transmission Date: 20141212
  Serious: Yes (Life-Threatening)
  Sender: FDA-Public Use
  Company Number: PHHY2014BR041405

PATIENT
  Sex: Female

DRUGS (1)
  1. CODATEN [Suspect]
     Dosage: 2 DF, UNK

REACTIONS (2)
  - Feeling abnormal [Unknown]
  - Malaise [Unknown]
